FAERS Safety Report 20056846 (Version 2)
Quarter: 2021Q4

REPORT INFORMATION
  Report Type: Spontaneous
  Country: JP (occurrence: JP)
  Receive Date: 20211111
  Receipt Date: 20211206
  Transmission Date: 20220303
  Serious: Yes (Life-Threatening, Other)
  Sender: FDA-Public Use
  Company Number: JP-ASTELLAS-2021JP021597

PATIENT
  Sex: Male

DRUGS (5)
  1. TACROLIMUS [Suspect]
     Active Substance: TACROLIMUS
     Indication: Systemic lupus erythematosus
     Dosage: UNK UNK, UNKNOWN FREQ.
     Route: 048
  2. METHOTREXATE [Suspect]
     Active Substance: METHOTREXATE
     Indication: Systemic lupus erythematosus
     Dosage: UNK UNK, UNKNOWN FREQ.
     Route: 048
  3. PREDNISOLONE [Concomitant]
     Active Substance: PREDNISOLONE
     Indication: Systemic lupus erythematosus
     Dosage: UNK UNK, UNKNOWN FREQ.
     Route: 048
  4. PREDNISOLONE [Concomitant]
     Active Substance: PREDNISOLONE
     Indication: Immunosuppressant drug therapy
     Dosage: 10 MG/DAY, UNKNOWN FREQ.
     Route: 048
  5. PREDNISOLONE [Concomitant]
     Active Substance: PREDNISOLONE
     Route: 048

REACTIONS (8)
  - Aortic aneurysm [Recovering/Resolving]
  - Staphylococcal sepsis [Unknown]
  - Septic shock [Unknown]
  - Acute kidney injury [Unknown]
  - Cytomegalovirus gastrointestinal ulcer [Unknown]
  - Osteomyelitis [Unknown]
  - Infected skin ulcer [Unknown]
  - Urinary tract infection [Unknown]
